FAERS Safety Report 8350595-0 (Version None)
Quarter: 2012Q2

REPORT INFORMATION
  Report Type: 
  Country: None (occurrence: None)
  Receive Date: 20120510
  Receipt Date: 20120424
  Transmission Date: 20120825
  Serious: Yes (Death, Hospitalization)
  Sender: FDA-Public Use
  Company Number: LB-MERCK-1203USA00638

PATIENT
  Age: 83 Year
  Sex: Female
  Weight: 85 kg

DRUGS (5)
  1. ZOCOR [Concomitant]
     Indication: DYSLIPIDAEMIA
     Route: 048
  2. DIOVAN HCT [Concomitant]
     Indication: HYPERTENSION
     Route: 065
  3. DILTIAZEM HCL [Concomitant]
     Indication: HYPERTENSION
     Route: 065
  4. INVANZ [Suspect]
     Indication: PNEUMONIA
     Route: 030
     Dates: start: 20120301, end: 20120305
  5. TAPAZOLE [Concomitant]
     Indication: HYPERTHYROIDISM
     Route: 065

REACTIONS (4)
  - DRUG INEFFECTIVE [None]
  - PNEUMONIA [None]
  - PYREXIA [None]
  - HAEMOPHILUS TEST POSITIVE [None]
